FAERS Safety Report 18760984 (Version 1)
Quarter: 2021Q1

REPORT INFORMATION
  Report Type: Spontaneous
  Country: US (occurrence: US)
  Receive Date: 20210120
  Receipt Date: 20210120
  Transmission Date: 20210419
  Serious: Yes (Other)
  Sender: FDA-Public Use
  Company Number: US-CIPLA LTD.-2021US00182

PATIENT

DRUGS (3)
  1. DICLOFENAC [Suspect]
     Active Substance: DICLOFENAC
     Indication: OSTEOARTHRITIS
     Dosage: UNK UNK, QID
     Route: 061
     Dates: start: 202012
  2. ALENDRONATE SODIUM. [Concomitant]
     Active Substance: ALENDRONATE SODIUM
     Indication: OSTEOPOROSIS
     Dosage: UNK, ONCE A WEEK, 3 YEARS AGO
     Route: 065
  3. DICLOFENAC [Suspect]
     Active Substance: DICLOFENAC
     Dosage: UNK UNK, BID
     Route: 061
     Dates: start: 20201226

REACTIONS (9)
  - Feeling abnormal [Unknown]
  - Dizziness [Unknown]
  - Product dose omission issue [Unknown]
  - Balance disorder [Unknown]
  - Nausea [Unknown]
  - Cerebrovascular accident [Unknown]
  - Treatment noncompliance [Unknown]
  - Inappropriate schedule of product administration [Unknown]
  - Feeding disorder [Unknown]

NARRATIVE: CASE EVENT DATE: 202012
